FAERS Safety Report 8389708 (Version 2)
Quarter: 2014Q3

REPORT INFORMATION
  Report Type: Spontaneous
  Country: US (occurrence: US)
  Receive Date: 20120203
  Receipt Date: 20140709
  Transmission Date: 20150326
  Serious: Yes (Death, Hospitalization)
  Sender: FDA-Public Use
  Company Number: US-GLAXOSMITHKLINE-A0875916A

PATIENT
  Sex: Male

DRUGS (11)
  1. AVAPRO [Concomitant]
     Active Substance: IRBESARTAN
  2. TOPROL XL [Concomitant]
     Active Substance: METOPROLOL SUCCINATE
  3. ZETIA [Concomitant]
     Active Substance: EZETIMIBE
  4. AVANDIA [Suspect]
     Active Substance: ROSIGLITAZONE MALEATE
     Indication: DIABETES MELLITUS
     Dosage: 4MG PER DAY
     Route: 048
     Dates: start: 20040514, end: 20071108
  5. PRAVACHOL [Concomitant]
     Active Substance: PRAVASTATIN SODIUM
  6. PREDNISONE. [Concomitant]
     Active Substance: PREDNISONE
  7. GLIPIZIDE. [Concomitant]
     Active Substance: GLIPIZIDE
  8. ALLEGRA [Concomitant]
     Active Substance: FEXOFENADINE HYDROCHLORIDE
  9. AMBIEN [Concomitant]
     Active Substance: ZOLPIDEM TARTRATE
  10. COUMADIN [Concomitant]
     Active Substance: WARFARIN SODIUM
  11. HCTZ [Concomitant]
     Active Substance: HYDROCHLOROTHIAZIDE

REACTIONS (4)
  - Cardiac failure congestive [Unknown]
  - Renal failure chronic [Unknown]
  - Coronary artery disease [Unknown]
  - Myocardial infarction [Fatal]
